FAERS Safety Report 11190475 (Version 1)
Quarter: 2015Q2

REPORT INFORMATION
  Report Type: Report from Study
  Country: US (occurrence: None)
  Receive Date: 20150603
  Receipt Date: 20150603
  Transmission Date: 20150821
  Serious: No
  Sender: FDA-Public Use
  Company Number: 2015TASUS000772

PATIENT
  Age: 52 Year
  Sex: Female
  Weight: 63 kg

DRUGS (9)
  1. LANTUS [Concomitant]
     Active Substance: INSULIN GLARGINE
  2. METHOCARBAMOL. [Concomitant]
     Active Substance: METHOCARBAMOL
  3. MAGNESIUM [Concomitant]
     Active Substance: MAGNESIUM
  4. FLONASE [Concomitant]
     Active Substance: FLUTICASONE PROPIONATE
  5. ACYCLOVIR. [Concomitant]
     Active Substance: ACYCLOVIR
  6. HETLIOZ [Suspect]
     Active Substance: TASIMELTEON
     Indication: CIRCADIAN RHYTHM SLEEP DISORDER
     Dosage: 20 MG, QD, ORAL
     Route: 048
     Dates: start: 20150419
  7. CALCIUM (CALCIUM CARBONATE) [Concomitant]
  8. HUMALOG [Concomitant]
     Active Substance: INSULIN LISPRO
  9. OMEGA 3 (FISH OIL) [Concomitant]
     Active Substance: OMEGA-3 FATTY ACIDS

REACTIONS (4)
  - Thyroid disorder [None]
  - Hypersomnia [None]
  - Somnolence [None]
  - Blood glucose abnormal [None]
